FAERS Safety Report 6203526-3 (Version None)
Quarter: 2009Q2

REPORT INFORMATION
  Report Type: 
  Country: None (occurrence: None)
  Receive Date: 20090527
  Receipt Date: 20090521
  Transmission Date: 20091009
  Serious: Yes (Other)
  Sender: FDA-Public Use
  Company Number: AU-ASTRAZENECA-2009AP02939

PATIENT
  Age: 17989 Day
  Sex: Female

DRUGS (3)
  1. SEROQUEL [Suspect]
     Indication: BIPOLAR DISORDER
     Route: 048
     Dates: start: 20060822
  2. SEROQUEL [Suspect]
     Dosage: DOSE INCREASED
     Route: 048
     Dates: start: 20090312
  3. EFFEXOR [Concomitant]
     Route: 065

REACTIONS (1)
  - HEPATIC ENZYME INCREASED [None]
